APPROVED DRUG PRODUCT: ALBUTEROL SULFATE
Active Ingredient: ALBUTEROL SULFATE
Strength: EQ 2MG BASE
Dosage Form/Route: TABLET;ORAL
Application: A207046 | Product #001 | TE Code: AB
Applicant: RISING PHARMA HOLDINGS INC
Approved: Jun 29, 2018 | RLD: No | RS: No | Type: RX